FAERS Safety Report 6305764-8 (Version None)
Quarter: 2009Q3

REPORT INFORMATION
  Report Type: 
  Country: None (occurrence: None)
  Receive Date: 20090812
  Receipt Date: 20090803
  Transmission Date: 20100115
  Serious: Yes (Hospitalization)
  Sender: FDA-Public Use
  Company Number: US-BIOGENIDEC-2009BI024416

PATIENT
  Age: 62 Year
  Sex: Female

DRUGS (1)
  1. AVONEX [Suspect]
     Indication: MULTIPLE SCLEROSIS
     Route: 030
     Dates: start: 20090731

REACTIONS (6)
  - BACK PAIN [None]
  - COUGH [None]
  - NASOPHARYNGITIS [None]
  - PAIN IN EXTREMITY [None]
  - PYREXIA [None]
  - VOMITING [None]
